FAERS Safety Report 23095015 (Version 1)
Quarter: 2023Q4

REPORT INFORMATION
  Report Type: Spontaneous
  Country: US (occurrence: US)
  Receive Date: 20231023
  Receipt Date: 20231023
  Transmission Date: 20240109
  Serious: Yes (Hospitalization, Other)
  Sender: FDA-Public Use
  Company Number: US-drreddys-SPO/USA/23/0180258

PATIENT
  Age: 61 Year
  Sex: Male

DRUGS (2)
  1. AMIODARONE HYDROCHLORIDE [Suspect]
     Active Substance: AMIODARONE HYDROCHLORIDE
     Indication: Atrial fibrillation
     Route: 048
  2. MILRINONE [Concomitant]
     Active Substance: MILRINONE
     Indication: Cardiogenic shock

REACTIONS (2)
  - Acute respiratory distress syndrome [Recovering/Resolving]
  - Product use in unapproved indication [Unknown]
